FAERS Safety Report 14187749 (Version 1)
Quarter: 2017Q4

REPORT INFORMATION
  Report Type: Spontaneous
  Country: US (occurrence: None)
  Receive Date: 20171114
  Receipt Date: 20171114
  Transmission Date: 20180321
  Serious: Yes (Disabling)
  Sender: FDA-Public Use
  Company Number: None

PATIENT
  Age: 76 Year
  Sex: Male
  Weight: 81.65 kg

DRUGS (7)
  1. PRESERVISION [Concomitant]
     Active Substance: MINERALS\VITAMINS
  2. PREDINISONE 10 MG TABLETS [Suspect]
     Active Substance: PREDNISONE
     Indication: PNEUMONITIS
     Dosage: 10 MG 21 2 TOO TIMES DAY FOR 3 DAYS 1 TOO TIMES DAY FOR 3 DAYS 1 ONE TIMES DAY FOR 3 DAY MOUTH
     Route: 048
     Dates: start: 20170818, end: 20170820
  3. MICLIZINE [Concomitant]
  4. BAYER [Concomitant]
     Active Substance: ASPIRIN
  5. VENTOLIN HFA [Concomitant]
     Active Substance: ALBUTEROL SULFATE
  6. MIRALAX [Concomitant]
     Active Substance: POLYETHYLENE GLYCOL 3350
  7. VITAMIN D [Concomitant]
     Active Substance: CHOLECALCIFEROL

REACTIONS (1)
  - Hiccups [None]

NARRATIVE: CASE EVENT DATE: 20170819
